FAERS Safety Report 15899004 (Version 1)
Quarter: 2019Q1

REPORT INFORMATION
  Report Type: Spontaneous
  Country: IT (occurrence: IT)
  Receive Date: 20190201
  Receipt Date: 20190201
  Transmission Date: 20190417
  Serious: Yes (Hospitalization)
  Sender: FDA-Public Use
  Company Number: IT-009507513-1901ITA011561

PATIENT
  Age: 91 Year
  Sex: Female

DRUGS (3)
  1. INSULIN [Concomitant]
     Active Substance: INSULIN NOS
     Indication: TYPE 2 DIABETES MELLITUS
     Dosage: 12 DF
     Route: 058
  2. DAPTOMYCIN. [Suspect]
     Active Substance: DAPTOMYCIN
     Indication: STAPHYLOCOCCAL SEPSIS
     Dosage: 500 MG, QD
     Route: 042
     Dates: start: 20190115, end: 20190115
  3. ENOXAPARIN SODIUM. [Concomitant]
     Active Substance: ENOXAPARIN SODIUM
     Indication: THROMBOSIS PROPHYLAXIS
     Dosage: 4000 KILO-INTERNATIONAL UNIT
     Route: 058
     Dates: start: 20181231, end: 20190117

REACTIONS (3)
  - Bronchospasm [Recovered/Resolved]
  - Hypoxia [Recovered/Resolved]
  - Rash [Recovered/Resolved]

NARRATIVE: CASE EVENT DATE: 20190115
